FAERS Safety Report 21292164 (Version 1)
Quarter: 2022Q3

REPORT INFORMATION
  Report Type: Report from Study
  Country: JP (occurrence: JP)
  Receive Date: 20220905
  Receipt Date: 20220905
  Transmission Date: 20221027
  Serious: Yes (Death)
  Sender: FDA-Public Use
  Company Number: JP-BAYER-2022A122313

PATIENT
  Age: 59 Year
  Sex: Female

DRUGS (13)
  1. VENTAVIS [Suspect]
     Active Substance: ILOPROST
     Indication: Pulmonary arterial hypertension
     Dosage: UNK
     Route: 055
     Dates: start: 20191217, end: 20191217
  2. REVATIO [Concomitant]
     Active Substance: SILDENAFIL CITRATE
     Dosage: DAILY DOSE 60 MG
     Route: 048
     Dates: end: 20200625
  3. OPSUMIT [Concomitant]
     Active Substance: MACITENTAN
     Dosage: DAILY DOSE 10 MG
     Route: 048
     Dates: end: 20200625
  4. TELMISARTAN [Concomitant]
     Active Substance: TELMISARTAN
     Dosage: DAILY DOSE 20 MG
     Route: 048
     Dates: end: 20200625
  5. SPIRONOLACTONE [Concomitant]
     Active Substance: SPIRONOLACTONE
     Dosage: DAILY DOSE 25 MG
     Route: 048
     Dates: end: 20200625
  6. PREDONINE [Concomitant]
     Active Substance: PREDNISOLONE
     Dosage: DAILY DOSE 15 MG
     Route: 048
     Dates: end: 20200625
  7. PLAQUENIL [Concomitant]
     Active Substance: HYDROXYCHLOROQUINE SULFATE
     Dosage: DAILY DOSE 200 MG
     Route: 048
     Dates: end: 20200625
  8. ATOVAQUONE [Concomitant]
     Active Substance: ATOVAQUONE
     Indication: Prophylaxis
     Dosage: DAILY DOSE 10 ML
     Route: 048
     Dates: end: 20200625
  9. RABEPRAZOLE SODIUM [Concomitant]
     Active Substance: RABEPRAZOLE SODIUM
     Indication: Prophylaxis
     Dosage: DAILY DOSE 10 MG
     Route: 048
     Dates: end: 20200625
  10. ALFACALCIDOL [Concomitant]
     Active Substance: ALFACALCIDOL
     Indication: Prophylaxis
     Dosage: DAILY DOSE .5 UG
     Route: 048
     Dates: end: 20200625
  11. CELLCEPT [Concomitant]
     Active Substance: MYCOPHENOLATE MOFETIL
     Dosage: DAILY DOSE 1000 MG
     Route: 048
     Dates: end: 20200625
  12. CYCLOPHOSPHAMIDE [Concomitant]
     Active Substance: CYCLOPHOSPHAMIDE
  13. OXYGEN [Concomitant]
     Active Substance: OXYGEN
     Indication: Pulmonary arterial hypertension
     Dosage: UNK
     Dates: end: 20200625

REACTIONS (1)
  - Cardio-respiratory arrest [Fatal]

NARRATIVE: CASE EVENT DATE: 20200625
